FAERS Safety Report 24429167 (Version 1)
Quarter: 2024Q4

REPORT INFORMATION
  Report Type: Spontaneous
  Country: GB (occurrence: GB)
  Receive Date: 20241011
  Receipt Date: 20241011
  Transmission Date: 20250114
  Serious: Yes (Other)
  Sender: ELI LILLY AND CO
  Company Number: GB-MHRA-EMIS-2787-5fead119-5f38-42cb-9196-0ff8a107c141

PATIENT
  Age: 62 Year
  Sex: Female
  Weight: 104 kg

DRUGS (5)
  1. MOUNJARO [Suspect]
     Active Substance: TIRZEPATIDE
     Indication: Product used for unknown indication
     Dosage: 2.5 MG, WEEKLY (1/W)
     Route: 058
     Dates: start: 20240919, end: 20240919
  2. BECLOMETHASONE\FORMOTEROL [Concomitant]
     Active Substance: BECLOMETHASONE\FORMOTEROL
     Indication: Product used for unknown indication
     Dosage: ONE PUFF TO BE INHALED TWICE A DAY, CAN HAVE 1-2 PUFFS AS REQUIRED THROUGHOUT (MAX 8 PUFFS/DAY)
     Dates: start: 20240808
  3. HYDROXOCOBALAMIN [Concomitant]
     Active Substance: HYDROXOCOBALAMIN
     Indication: Product used for unknown indication
     Dosage: AS DIRECTED
     Dates: start: 20240903
  4. OMEPRAZOLE [Concomitant]
     Active Substance: OMEPRAZOLE
     Indication: Gastritis prophylaxis
     Dosage: 1 DOSAGE FORM, DAILY
     Dates: start: 20240919
  5. FEXOFENADINE [Concomitant]
     Active Substance: FEXOFENADINE HYDROCHLORIDE
     Indication: Product used for unknown indication
     Dosage: 1 DOSAGE FORM, DAILY

REACTIONS (4)
  - Rash [Unknown]
  - Rash pruritic [Unknown]
  - Rash vesicular [Unknown]
  - Urticaria [Unknown]

NARRATIVE: CASE EVENT DATE: 20240920
